FAERS Safety Report 25623503 (Version 1)
Quarter: 2025Q3

REPORT INFORMATION
  Report Type: Spontaneous
  Country: US (occurrence: None)
  Receive Date: 20250730
  Receipt Date: 20250730
  Transmission Date: 20251020
  Serious: Yes (Other)
  Sender: FDA-CTU
  Company Number: None

PATIENT
  Age: 35 Year
  Sex: Male
  Weight: 112.5 kg

DRUGS (4)
  1. REGLAN [Suspect]
     Active Substance: METOCLOPRAMIDE HYDROCHLORIDE
  2. TORADOL [Suspect]
     Active Substance: KETOROLAC TROMETHAMINE
  3. BENADRYL [Suspect]
     Active Substance: DIPHENHYDRAMINE HYDROCHLORIDE
  4. METHADONE [Concomitant]
     Active Substance: METHADONE HYDROCHLORIDE

REACTIONS (6)
  - Anxiety [None]
  - Unevaluable event [None]
  - Insomnia [None]
  - Feeling jittery [None]
  - Muscle twitching [None]
  - Fear [None]

NARRATIVE: CASE EVENT DATE: 20250728
